FAERS Safety Report 4678030-4 (Version None)
Quarter: 2005Q2

REPORT INFORMATION
  Report Type: 
  Country: None (occurrence: None)
  Receive Date: 20050531
  Receipt Date: 20041012
  Transmission Date: 20051028
  Serious: Yes (Hospitalization, Disabling, Other)
  Sender: FDA-Public Use
  Company Number: DE-MERCK-0410DEU00382

PATIENT
  Age: 70 Year
  Sex: Male

DRUGS (3)
  1. VIOXX [Suspect]
     Indication: MONARTHRITIS
     Route: 048
     Dates: start: 20031124, end: 20030101
  2. VIOXX [Suspect]
     Route: 048
     Dates: start: 20030101, end: 20040907
  3. TRANDOLAPRIL AND VERAPAMIL HYDROCHLORIDE [Concomitant]
     Route: 048

REACTIONS (8)
  - CEREBRAL INFARCTION [None]
  - EYELID PTOSIS [None]
  - HYPERTENSION [None]
  - HYPOACUSIS [None]
  - INJURY [None]
  - PROCEDURAL COMPLICATION [None]
  - TEMPORAL ARTERITIS [None]
  - THROMBOSIS [None]
